FAERS Safety Report 22182521 (Version 1)
Quarter: 2023Q2

REPORT INFORMATION
  Report Type: Spontaneous
  Country: RS (occurrence: RS)
  Receive Date: 20230406
  Receipt Date: 20230406
  Transmission Date: 20230722
  Serious: Yes (Other)
  Sender: FDA-Public Use
  Company Number: RS-AMGEN-SRBSP2023054999

PATIENT
  Age: 92 Year
  Sex: Female
  Weight: 52 kg

DRUGS (4)
  1. PROLIA [Suspect]
     Active Substance: DENOSUMAB
     Indication: Osteoporosis
     Dosage: 60 MILLIGRAM/ML
     Route: 058
     Dates: start: 202207
  2. CALCIUM CARBONATE [Concomitant]
     Active Substance: CALCIUM CARBONATE
     Indication: Osteoporosis
     Dosage: 500 MILLIGRAM, QD (1000 MG)
     Dates: start: 2019
  3. CHOLECALCIFEROL [Concomitant]
     Active Substance: CHOLECALCIFEROL
     Indication: Osteoporosis
     Dosage: 15 DROP, QD (400 IU)
     Route: 048
     Dates: start: 2019
  4. ASPIRIN [Concomitant]
     Active Substance: ASPIRIN
     Indication: Cardiac disorder
     Dosage: 100 MILLIGRAM, QD

REACTIONS (1)
  - Orthostatic hypotension [Recovered/Resolved]

NARRATIVE: CASE EVENT DATE: 20230301
